FAERS Safety Report 4629347-0 (Version None)
Quarter: 2005Q2

REPORT INFORMATION
  Report Type: 
  Country: None (occurrence: None)
  Receive Date: 20050404
  Receipt Date: 20050314
  Transmission Date: 20051028
  Serious: Yes (Death, Congenital Anomaly)
  Sender: FDA-Public Use
  Company Number: B0374588A

PATIENT
  Sex: Male

DRUGS (4)
  1. ZIDOVUDINE [Suspect]
     Dosage: TRANSPLACENTARY
     Route: 064
  2. LAMIVUDINE [Suspect]
     Dosage: TRANSPLACENTARY
     Route: 064
  3. NELFINAVIR MESYLATE (NELFINAVIR MESYLATE) [Suspect]
  4. ZIDOVUDINE [Suspect]
     Dosage: ORAL
     Route: 048

REACTIONS (15)
  - CAESAREAN SECTION [None]
  - COMBINED IMMUNODEFICIENCY [None]
  - CONGENITAL ANOMALY [None]
  - CONGENITAL HYPOGAMMAGLOBULINAEMIA [None]
  - DRUG EXPOSURE DURING PREGNANCY [None]
  - GASTROENTERITIS ROTAVIRUS [None]
  - GENE MUTATION IDENTIFICATION TEST POSITIVE [None]
  - HYPOTONIA NEONATAL [None]
  - LYMPHOPENIA [None]
  - NEONATAL DISORDER [None]
  - NEONATAL PNEUMONIA [None]
  - OPISTHOTONUS [None]
  - STEM CELL TRANSPLANT [None]
  - THERAPY NON-RESPONDER [None]
  - VERTICAL INFECTION TRANSMISSION [None]
